FAERS Safety Report 5425691-8 (Version None)
Quarter: 2007Q3

REPORT INFORMATION
  Report Type: 
  Country: None (occurrence: None)
  Receive Date: 20070824
  Receipt Date: 20070813
  Transmission Date: 20080115
  Serious: Yes (Other)
  Sender: FDA-Public Use
  Company Number: US-PFIZER INC-2007068031

PATIENT
  Sex: Male
  Weight: 54 kg

DRUGS (5)
  1. CHANTIX [Suspect]
     Indication: SMOKING CESSATION THERAPY
     Dates: start: 20070724, end: 20070813
  2. VENTOLIN [Concomitant]
  3. FLOVENT [Concomitant]
  4. MOTRIN [Concomitant]
     Route: 048
  5. PERCOCET [Concomitant]

REACTIONS (5)
  - DEPRESSED MOOD [None]
  - ERYTHEMA [None]
  - HYPERHIDROSIS [None]
  - PYREXIA [None]
  - SKIN BURNING SENSATION [None]
